FAERS Safety Report 9358018 (Version 1)
Quarter: 2013Q2

REPORT INFORMATION
  Report Type: Spontaneous
  Country: US (occurrence: None)
  Receive Date: 20130619
  Receipt Date: 20130619
  Transmission Date: 20140414
  Serious: Yes (Death, Life-Threatening)
  Sender: FDA-Public Use
  Company Number: None

PATIENT
  Age: 68 Year
  Sex: Female
  Weight: 76.7 kg

DRUGS (5)
  1. SALINE [Suspect]
     Dates: start: 20130508
  2. MVI [Concomitant]
  3. HYDRALAZINE [Concomitant]
  4. NOVOLIN [Concomitant]
  5. LEVOTHYROXIN [Concomitant]

REACTIONS (4)
  - Chills [None]
  - Tachycardia [None]
  - Unresponsive to stimuli [None]
  - Resuscitation [None]
